FAERS Safety Report 23349451 (Version 2)
Quarter: 2024Q3

REPORT INFORMATION
  Report Type: Spontaneous
  Country: US (occurrence: US)
  Receive Date: 20231229
  Receipt Date: 20240717
  Transmission Date: 20241017
  Serious: No
  Sender: SANOFI AVENTIS
  Company Number: US-SA-SAC20231220000578

PATIENT
  Age: 45 Year
  Sex: Female

DRUGS (1)
  1. DUPIXENT [Suspect]
     Active Substance: DUPILUMAB
     Indication: Dermatitis atopic
     Dosage: 300MG, QOW
     Route: 058
     Dates: start: 202308

REACTIONS (4)
  - Acne [Not Recovered/Not Resolved]
  - Skin swelling [Not Recovered/Not Resolved]
  - Vision blurred [Unknown]
  - Papule [Unknown]

NARRATIVE: CASE EVENT DATE: 20230101
